FAERS Safety Report 8270105-6 (Version None)
Quarter: 2012Q2

REPORT INFORMATION
  Report Type: 
  Country: None (occurrence: None)
  Receive Date: 20120410
  Receipt Date: 20120402
  Transmission Date: 20120825
  Serious: Yes (Other)
  Sender: FDA-Public Use
  Company Number: PHHY2011CA28239

PATIENT
  Sex: Male

DRUGS (11)
  1. METOPROLOL TARTRATE [Concomitant]
     Indication: ATRIAL FIBRILLATION
     Dosage: 75 MG, BID
  2. PREDNISONE TAB [Concomitant]
     Indication: POLYCHONDRITIS
     Dosage: 10 MG, QD
  3. CIPROFLOXACIN HCL [Concomitant]
     Dosage: 1 DF, QOD
  4. VITAMIN D [Concomitant]
  5. EXJADE [Suspect]
     Dosage: 1750 MG, UNK
     Route: 048
  6. ACTONEL [Concomitant]
  7. ARICEPT [Concomitant]
  8. CALCIUM CARBONATE [Concomitant]
  9. EXJADE [Suspect]
     Indication: MYELODYSPLASTIC SYNDROME
     Dosage: 1000 MG, QD
     Route: 048
     Dates: start: 20110101
  10. PANTOPRAZOLE [Concomitant]
     Dosage: 40 MG, QD
  11. MULTI-VITAMINS [Concomitant]

REACTIONS (4)
  - GASTROINTESTINAL MOTILITY DISORDER [None]
  - HAEMOGLOBIN DECREASED [None]
  - EAR NEOPLASM MALIGNANT [None]
  - CONSTIPATION [None]
